FAERS Safety Report 6390746-0 (Version None)
Quarter: 2009Q4

REPORT INFORMATION
  Report Type: 
  Country: None (occurrence: None)
  Receive Date: 20091006
  Receipt Date: 20091002
  Transmission Date: 20100525
  Serious: Yes (Hospitalization, Other)
  Sender: FDA-Public Use
  Company Number: IT-ROXANE LABORATORIES, INC.-2009-RO-01025RO

PATIENT
  Age: 79 Year
  Sex: Male

DRUGS (14)
  1. OXCARBAZEPINE [Suspect]
  2. SULPIRIDE [Suspect]
  3. TETRAZEPAM [Suspect]
  4. OMEPRAZOLE [Suspect]
  5. TIOTROPIUM BROMIDE [Suspect]
  6. BUDESONIDE [Suspect]
  7. FORMOTEROL FUMARATE [Suspect]
     Route: 055
  8. DEXKETOPROFEN [Suspect]
  9. ENALAPRIL MALEATE [Suspect]
  10. DEFLAZACORT [Suspect]
     Indication: DYSPNOEA
  11. HYDROCHLOROTHIAZIDE [Suspect]
     Indication: BLOOD PRESSURE INCREASED
  12. HYPERTONIC SALINE [Concomitant]
     Indication: HYPONATRAEMIA
     Route: 042
  13. FUROSEMIDE [Concomitant]
     Indication: HYPONATRAEMIA
     Route: 042
  14. LEVETIRACETAM [Concomitant]

REACTIONS (3)
  - BLOOD PRESSURE INCREASED [None]
  - HYPONATRAEMIA [None]
  - INAPPROPRIATE ANTIDIURETIC HORMONE SECRETION [None]
